FAERS Safety Report 23578866 (Version 3)
Quarter: 2024Q1

REPORT INFORMATION
  Report Type: Spontaneous
  Country: DE (occurrence: DE)
  Receive Date: 20240229
  Receipt Date: 20240331
  Transmission Date: 20240410
  Serious: Yes (Hospitalization)
  Sender: FDA-Public Use
  Company Number: DE-PFIZER INC-202400048611

PATIENT
  Age: 9 Year
  Sex: Female
  Weight: 33.3 kg

DRUGS (1)
  1. ENBREL [Suspect]
     Active Substance: ETANERCEPT
     Indication: Juvenile idiopathic arthritis
     Dosage: EVERY 1-2 WEEKS
     Route: 058
     Dates: start: 20191015, end: 20240222

REACTIONS (3)
  - Intracranial pressure increased [Unknown]
  - Visual impairment [Recovered/Resolved]
  - Papilloedema [Unknown]

NARRATIVE: CASE EVENT DATE: 20240201
